FAERS Safety Report 5212979-9 (Version None)
Quarter: 2007Q1

REPORT INFORMATION
  Report Type: 
  Country: None (occurrence: None)
  Receive Date: 20070117
  Receipt Date: 20070103
  Transmission Date: 20070707
  Serious: Yes (Other)
  Sender: FDA-Public Use
  Company Number: 2007SP000431

PATIENT
  Age: 23 Year

DRUGS (3)
  1. TEMOZOLOMIDE (S-P) [Suspect]
     Indication: EWING'S SARCOMA
     Dosage: 100 MG/M2; QD; PO
     Route: 048
  2. IRINOTECAN [Suspect]
     Indication: EWING'S SARCOMA
     Dosage: 10 MG/M2; QD; IV
     Route: 042
  3. RADIOTHERAPY [Concomitant]

REACTIONS (1)
  - INFECTION [None]
